FAERS Safety Report 8171417-7 (Version None)
Quarter: 2012Q1

REPORT INFORMATION
  Report Type: 
  Country: None (occurrence: None)
  Receive Date: 20120104
  Receipt Date: 20111202
  Transmission Date: 20120608
  Serious: No
  Sender: FDA-Public Use
  Company Number: 2011HGS-002905

PATIENT
  Age: 56 Year
  Sex: Female
  Weight: 82.1011 kg

DRUGS (18)
  1. PROPANOLOL(PROPRANOLOL) (PROPRANOLOL) [Concomitant]
  2. PROVENTIL(SALBUTAMOL SULFATE)(SALBUTAMOL SULFATE) [Concomitant]
  3. LASIX [Concomitant]
  4. EPI-PEN(EPINEPHRINE) (EPINEPHRINE) [Concomitant]
  5. NITROGLYCERIN [Concomitant]
  6. QVAR(BECLOMETASONE DIPROPIONATE)(BECLOMETASONE DIPROPIONATE) [Concomitant]
  7. SINGULAIR(MONTELUKAST)(MONTELUKAST) [Concomitant]
  8. BENLYSTA [Suspect]
     Indication: SYSTEMIC LUPUS ERYTHEMATOSUS
     Dosage: 1 IN 28 D, INTRAVENOUS DRIP
     Route: 041
     Dates: start: 20110726
  9. VITAMIN D(ERGOCALCIFEROL)(ERGOCALCIFEROL [Concomitant]
  10. LEVOTHYROXINE SODIUM [Concomitant]
  11. PREDNISONE [Concomitant]
  12. CLONAZEPAM [Concomitant]
  13. ADVAIR(SERETIDE MITE)(FLUTICASONE PROPIONATE, SALMETEROL XINAFOATE) [Concomitant]
  14. PLAQUENIL (HYDROXYCHLOROQUINE SULFATE)(HYDROXYCHLOROQUINE SULFATE) [Concomitant]
  15. COUMADIN [Concomitant]
  16. XOPENEX(LEVOSALBUTAMOL) (LEVOSALBUTAMOL) [Concomitant]
  17. SINEMET(SINEMET)(LEVODOPA, CARBIDOPA) [Concomitant]
  18. FIBERCON(POLYCARBOPHIL CALCIUM)(POLYCARBOPHIL CALCIUM) [Concomitant]

REACTIONS (13)
  - OCULAR HYPERAEMIA [None]
  - ERYTHEMA [None]
  - MOUTH ULCERATION [None]
  - CHILLS [None]
  - FATIGUE [None]
  - DYSPNOEA [None]
  - EYE SWELLING [None]
  - COUGH [None]
  - OROPHARYNGEAL PAIN [None]
  - PALPITATIONS [None]
  - NASAL CONGESTION [None]
  - SWELLING [None]
  - CHEST PAIN [None]
